FAERS Safety Report 12879242 (Version 4)
Quarter: 2018Q1

REPORT INFORMATION
  Report Type: Report from Study
  Country: US (occurrence: US)
  Receive Date: 20161025
  Receipt Date: 20180223
  Transmission Date: 20180508
  Serious: Yes (Other)
  Sender: FDA-Public Use
  Company Number: PHHY2015US158988

PATIENT
  Age: 26 Year
  Sex: Female

DRUGS (1)
  1. GILENYA [Suspect]
     Active Substance: FINGOLIMOD HYDROCHLORIDE
     Indication: MULTIPLE SCLEROSIS
     Dosage: UNK, QD
     Route: 048

REACTIONS (20)
  - Blood alkaline phosphatase decreased [Unknown]
  - Back pain [Unknown]
  - Hypoaesthesia [Unknown]
  - Micturition urgency [Unknown]
  - Gait disturbance [Unknown]
  - Chest pain [Unknown]
  - Balance disorder [Unknown]
  - Fatigue [Unknown]
  - Visual impairment [Unknown]
  - Renal pain [Unknown]
  - Gastrointestinal disorder [Unknown]
  - Urinary tract infection [Unknown]
  - Nausea [Unknown]
  - Arthralgia [Unknown]
  - Ear pain [Unknown]
  - Weight increased [Unknown]
  - Tremor [Unknown]
  - Vitamin D decreased [Unknown]
  - Blepharospasm [Unknown]
  - Pain in extremity [Unknown]

NARRATIVE: CASE EVENT DATE: 20160406
